FAERS Safety Report 20445428 (Version 1)
Quarter: 2022Q1

REPORT INFORMATION
  Report Type: Spontaneous
  Country: US (occurrence: None)
  Receive Date: 20220207
  Receipt Date: 20220207
  Transmission Date: 20220423
  Serious: No
  Sender: FDA-Public Use
  Company Number: None

PATIENT
  Age: 29 Year
  Sex: Female
  Weight: 66 kg

DRUGS (5)
  1. WIXELA INHUB [Suspect]
     Active Substance: FLUTICASONE PROPIONATE\SALMETEROL XINAFOATE
     Indication: Asthma
     Dosage: FREQUENCY : TWICE A DAY;?
     Route: 055
     Dates: start: 20200110, end: 20200320
  2. EPINEPHRINE [Concomitant]
     Active Substance: EPINEPHRINE
  3. SPIRONOLACTONE [Concomitant]
     Active Substance: SPIRONOLACTONE
  4. ALBUTEROL [Concomitant]
     Active Substance: ALBUTEROL
  5. ?NUVA RING [Concomitant]

REACTIONS (3)
  - Product substitution issue [None]
  - Asthma [None]
  - Therapeutic product effect decreased [None]

NARRATIVE: CASE EVENT DATE: 20200110
